FAERS Safety Report 13080063 (Version 1)
Quarter: 2017Q1

REPORT INFORMATION
  Report Type: Spontaneous
  Country: US (occurrence: US)
  Receive Date: 20170103
  Receipt Date: 20170103
  Transmission Date: 20170428
  Serious: Yes (Hospitalization, Other)
  Sender: FDA-Public Use
  Company Number: US-BRISTOL-MYERS SQUIBB COMPANY-BMS-2016-112265

PATIENT
  Age: 86 Year
  Sex: Male
  Weight: 74.8 kg

DRUGS (1)
  1. COUMADIN [Suspect]
     Active Substance: WARFARIN SODIUM
     Indication: PRODUCT USED FOR UNKNOWN INDICATION
     Dosage: 3 MG, UNK,DAILY
     Route: 065
     Dates: start: 201504, end: 20161026

REACTIONS (5)
  - Internal haemorrhage [Unknown]
  - Full blood count decreased [Unknown]
  - Transfusion [Unknown]
  - Dyspnoea [Unknown]
  - Haematochezia [Unknown]

NARRATIVE: CASE EVENT DATE: 201610
